FAERS Safety Report 7603299-3 (Version None)
Quarter: 2011Q3

REPORT INFORMATION
  Report Type: 
  Country: None (occurrence: None)
  Receive Date: 20110712
  Receipt Date: 20110322
  Transmission Date: 20111222
  Serious: Yes (Other)
  Sender: FDA-Public Use
  Company Number: US-CELGENEUS-163-22393-11032896

PATIENT

DRUGS (2)
  1. ISTODAX [Suspect]
     Indication: MALIGNANT GLIOMA
     Dosage: 17.7 MILLIGRAM/SQ. METER
     Route: 065
  2. ISTODAX [Suspect]
     Dosage: 13.3 MILLIGRAM/SQ. METER
     Route: 051

REACTIONS (58)
  - CARDIAC DISORDER [None]
  - ANAEMIA [None]
  - LEUKOPENIA [None]
  - THROMBOCYTOPENIA [None]
  - CHILLS [None]
  - DRY MOUTH [None]
  - BLOOD CREATININE INCREASED [None]
  - ABDOMINAL PAIN [None]
  - HEADACHE [None]
  - GAIT DISTURBANCE [None]
  - DYSPEPSIA [None]
  - HYPOTENSION [None]
  - HYPOPHOSPHATAEMIA [None]
  - PYREXIA [None]
  - WEIGHT DECREASED [None]
  - HYPOALBUMINAEMIA [None]
  - DIZZINESS [None]
  - TRANSAMINASES INCREASED [None]
  - FATIGUE [None]
  - HYPOCALCAEMIA [None]
  - PROTHROMBIN TIME PROLONGED [None]
  - FLATULENCE [None]
  - BLOOD BILIRUBIN INCREASED [None]
  - BLOOD CHOLESTEROL INCREASED [None]
  - ARTHRALGIA [None]
  - DEVICE OCCLUSION [None]
  - VENTRICULAR ARRHYTHMIA [None]
  - BLOOD ALKALINE PHOSPHATASE INCREASED [None]
  - HYPERGLYCAEMIA [None]
  - HYPONATRAEMIA [None]
  - HOT FLUSH [None]
  - PETECHIAE [None]
  - HYPERMAGNESAEMIA [None]
  - CONFUSIONAL STATE [None]
  - CHEST PAIN [None]
  - LYMPHOPENIA [None]
  - VOMITING [None]
  - ALOPECIA [None]
  - DRY SKIN [None]
  - DECREASED APPETITE [None]
  - HYPOKALAEMIA [None]
  - MUSCULOSKELETAL DISORDER [None]
  - CONSTIPATION [None]
  - PRURITUS [None]
  - DIARRHOEA [None]
  - NAUSEA [None]
  - HYPOMAGNESAEMIA [None]
  - MUSCULAR WEAKNESS [None]
  - ARTHROPATHY [None]
  - PAIN IN EXTREMITY [None]
  - HYPOGLYCAEMIA [None]
  - INJECTION SITE REACTION [None]
  - RASH [None]
  - NEUTROPENIA [None]
  - MUCOSAL INFLAMMATION [None]
  - DYSGEUSIA [None]
  - OEDEMA PERIPHERAL [None]
  - VISION BLURRED [None]
